FAERS Safety Report 7033116-4 (Version None)
Quarter: 2010Q4

REPORT INFORMATION
  Report Type: 
  Country: None (occurrence: None)
  Receive Date: 20101007
  Receipt Date: 20101001
  Transmission Date: 20110411
  Serious: Yes (Hospitalization)
  Sender: FDA-Public Use
  Company Number: US-B.I. PHARMACEUTICALS,INC./RIDGEFIELD-2010-BP-10918BP

PATIENT
  Age: 79 Year
  Sex: Male

DRUGS (3)
  1. AGGRENOX [Suspect]
     Dosage: 25MG/200MG
     Route: 048
     Dates: start: 20100801, end: 20100920
  2. AGGRENOX [Suspect]
     Dosage: 25MG/200MG
     Route: 048
     Dates: start: 20100923
  3. ASPIRIN [Concomitant]

REACTIONS (3)
  - CAROTID ARTERY STENOSIS [None]
  - DIARRHOEA [None]
  - MYALGIA [None]
